FAERS Safety Report 18598968 (Version 5)
Quarter: 2021Q1

REPORT INFORMATION
  Report Type: Spontaneous
  Country: US (occurrence: US)
  Receive Date: 20201210
  Receipt Date: 20210314
  Transmission Date: 20210419
  Serious: No
  Sender: FDA-Public Use
  Company Number: US-BLUEPRINT MEDICINES CORPORATION-SP-US-2020-001263

PATIENT
  Age: 66 Year
  Sex: Female

DRUGS (2)
  1. AYVAKIT [Suspect]
     Active Substance: AVAPRITINIB
     Route: 048
     Dates: start: 20200924
  2. AYVAKIT [Suspect]
     Active Substance: AVAPRITINIB
     Indication: GASTROINTESTINAL STROMAL TUMOUR
     Route: 048
     Dates: start: 20200921

REACTIONS (6)
  - Blood potassium decreased [Not Recovered/Not Resolved]
  - Fatigue [Recovered/Resolved]
  - Eye swelling [Not Recovered/Not Resolved]
  - Depression [Not Recovered/Not Resolved]
  - White blood cell count decreased [Not Recovered/Not Resolved]
  - Periorbital oedema [Unknown]

NARRATIVE: CASE EVENT DATE: 20201025
